FAERS Safety Report 12329936 (Version 4)
Quarter: 2017Q3

REPORT INFORMATION
  Report Type: Spontaneous
  Country: KR (occurrence: KR)
  Receive Date: 20160504
  Receipt Date: 20170728
  Transmission Date: 20171127
  Serious: Yes (Hospitalization)
  Sender: FDA-Public Use
  Company Number: KR-009507513-1605KOR000841

PATIENT
  Age: 72 Year
  Sex: Male
  Weight: 62.7 kg

DRUGS (26)
  1. SOLONDO [Concomitant]
     Active Substance: PREDNISOLONE
     Dosage: 30 MG, BID
     Route: 048
     Dates: start: 20151123, end: 20151127
  2. ONSETRON [Concomitant]
     Active Substance: ONDANSETRON
     Indication: PROPHYLAXIS OF NAUSEA AND VOMITING
     Dosage: 8 MG, BID
     Route: 042
     Dates: start: 20151123, end: 20151123
  3. SEPTRIN [Concomitant]
     Active Substance: SULFAMETHOXAZOLE\TRIMETHOPRIM
     Indication: INFECTION PROPHYLAXIS
     Dosage: 1 TABLET, BID
     Route: 048
     Dates: start: 20151118
  4. TRIDOL (TRAMADOL HYDROCHLORIDE) [Concomitant]
     Indication: PAIN PROPHYLAXIS
     Dosage: 50 MG, TID
     Route: 048
     Dates: start: 20151116
  5. CORTISOLU [Concomitant]
     Active Substance: HYDROCORTISONE SODIUM SUCCINATE
     Indication: URTICARIA
     Dosage: 100 MG, QD
     Route: 042
     Dates: start: 20151121, end: 20151123
  6. LEUCOSTIM [Concomitant]
     Active Substance: FILGRASTIM
     Indication: PROPHYLAXIS
     Dosage: 300 MICROGRAM, QD
     Route: 042
     Dates: start: 20151130, end: 20151204
  7. DUPHALAC [Concomitant]
     Active Substance: LACTULOSE
     Indication: CONSTIPATION PROPHYLAXIS
     Dosage: 15 ML, TID
     Route: 048
     Dates: start: 20151130, end: 20151210
  8. ENDOXAN [Concomitant]
     Active Substance: CYCLOPHOSPHAMIDE
     Indication: LYMPHOMA
     Dosage: 882 MG, ONCE
     Route: 042
     Dates: start: 20151123, end: 20151123
  9. SOLONDO [Concomitant]
     Active Substance: PREDNISOLONE
     Indication: VOMITING
     Dosage: 40 MG, QD
     Route: 048
     Dates: start: 20151123, end: 20151127
  10. GASTER [Concomitant]
     Active Substance: FAMOTIDINE
     Indication: PROPHYLAXIS
     Dosage: 20 MG, BID
     Route: 048
     Dates: start: 20151112
  11. TRIDOL (TRAMADOL HYDROCHLORIDE) [Concomitant]
     Indication: PAIN PROPHYLAXIS
     Dosage: 100 MG, QD
     Route: 042
     Dates: start: 20151113, end: 20151115
  12. CHLORPHENIRAMINE MALEATE. [Concomitant]
     Active Substance: CHLORPHENIRAMINE MALEATE
     Indication: URTICARIA
     Dosage: 4 MG, QD
     Route: 048
     Dates: start: 20151121, end: 20151123
  13. HEPARIN SODIUM. [Concomitant]
     Active Substance: HEPARIN SODIUM
     Indication: THROMBOSIS PROPHYLAXIS
     Dosage: 2 DF, QD
     Route: 042
     Dates: start: 20151113, end: 20151201
  14. LASIX [Concomitant]
     Active Substance: FUROSEMIDE
     Dosage: 20 MG, QD
     Route: 042
     Dates: start: 20151118, end: 20151121
  15. VINCRISTINE SULFATE. [Concomitant]
     Active Substance: VINCRISTINE SULFATE
     Indication: LYMPHOMA
     Dosage: 2 MG, ONCE
     Route: 042
     Dates: start: 20151123, end: 20151123
  16. ADRIAMYCIN [Concomitant]
     Active Substance: DOXORUBICIN HYDROCHLORIDE
     Indication: LYMPHOMA
     Dosage: 59 MG, ONCE
     Route: 042
     Dates: start: 20151123, end: 20151123
  17. DICAMAX [Concomitant]
     Indication: VITAMIN SUPPLEMENTATION
     Dosage: 1250/10 MG (1 TABLET), QD
     Route: 048
     Dates: start: 20151112
  18. FOLIC ACID. [Concomitant]
     Active Substance: FOLIC ACID
     Indication: ANAEMIA PROPHYLAXIS
     Dosage: 2 MG, QD
     Route: 048
     Dates: start: 20151119
  19. DENOGAN [Concomitant]
     Active Substance: PROPACETAMOL HYDROCHLORIDE
     Indication: PAIN PROPHYLAXIS
     Dosage: 1 G, QD
     Route: 042
     Dates: start: 20151127, end: 20151128
  20. DICAMAX [Concomitant]
     Dosage: 1250/10 MG (1 TABLET),, QD
     Route: 048
     Dates: start: 20151128, end: 20151210
  21. TAMSULOSIN HYDROCHLORIDE. [Concomitant]
     Active Substance: TAMSULOSIN HYDROCHLORIDE
     Indication: MICTURITION DISORDER
     Dosage: 0.2 MG, QD
     Route: 048
     Dates: start: 20151128, end: 20151210
  22. CEFAZOLIN SODIUM. [Concomitant]
     Active Substance: CEFAZOLIN SODIUM
     Indication: INFECTION PROPHYLAXIS
     Dosage: 1 G, QD
     Route: 042
     Dates: start: 20151112, end: 20151128
  23. BIO ASTRIX [Concomitant]
     Indication: THROMBOSIS PROPHYLAXIS
     Dosage: 100 MG, QD
     Route: 048
     Dates: start: 20151124, end: 20151204
  24. FRAGMIN [Concomitant]
     Active Substance: DALTEPARIN SODIUM
     Indication: THROMBOSIS PROPHYLAXIS
     Dosage: 5000 IU, QD
     Route: 058
     Dates: start: 20151202, end: 20151210
  25. EMEND (FOSAPREPITANT DIMEGLUMINE) [Suspect]
     Active Substance: FOSAPREPITANT DIMEGLUMINE
     Indication: PROPHYLAXIS OF NAUSEA AND VOMITING
     Dosage: 150 MG, ONCE
     Route: 042
     Dates: start: 20151123, end: 20151123
  26. TAZOPERAN [Concomitant]
     Indication: PYREXIA
     Dosage: 4.5 G, 4 TIMES A DAY
     Route: 042
     Dates: start: 20151128, end: 20151203

REACTIONS (3)
  - Pyrexia [Recovered/Resolved]
  - Micturition disorder [Recovered/Resolved]
  - Dry mouth [Recovered/Resolved]

NARRATIVE: CASE EVENT DATE: 20151125
